FAERS Safety Report 8037117-9 (Version None)
Quarter: 2012Q1

REPORT INFORMATION
  Report Type: 
  Country: None (occurrence: None)
  Receive Date: 20120111
  Receipt Date: 20120110
  Transmission Date: 20120608
  Serious: Yes (Other)
  Sender: FDA-Public Use
  Company Number: US-PFIZER INC-2012007617

PATIENT
  Sex: Female
  Weight: 61.224 kg

DRUGS (3)
  1. LAMOTRIGINE [Concomitant]
     Indication: DEPRESSION
  2. LAMOTRIGINE [Concomitant]
     Indication: SCHIZOPHRENIA
     Dosage: UNK
  3. GEODON [Suspect]
     Indication: SCHIZOPHRENIA
     Dosage: 40 MG, 2X/DAY
     Route: 048
     Dates: start: 20110101

REACTIONS (3)
  - IRRITABILITY [None]
  - DRUG INEFFECTIVE [None]
  - AGGRESSION [None]
